FAERS Safety Report 9386579 (Version 1)
Quarter: 2013Q3

REPORT INFORMATION
  Report Type: Spontaneous
  Country: US (occurrence: US)
  Receive Date: 20130708
  Receipt Date: 20130708
  Transmission Date: 20140515
  Serious: No
  Sender: FDA-Public Use
  Company Number: US-BIOGENIDEC-2013BI060957

PATIENT
  Sex: Female

DRUGS (4)
  1. TYSABRI [Suspect]
     Indication: MULTIPLE SCLEROSIS
     Route: 042
     Dates: start: 20050129, end: 20050129
  2. TYSABRI [Suspect]
     Indication: MULTIPLE SCLEROSIS
     Route: 042
     Dates: start: 20120814, end: 20130426
  3. AVONEX [Concomitant]
     Indication: MULTIPLE SCLEROSIS
     Route: 030
     Dates: start: 20021101
  4. AMPYRA [Concomitant]
     Indication: GAIT DISTURBANCE
     Dates: start: 2012

REACTIONS (3)
  - Blood test abnormal [Unknown]
  - Gait disturbance [Unknown]
  - Drug ineffective [Recovered/Resolved]
